FAERS Safety Report 14907215 (Version 1)
Quarter: 2018Q2

REPORT INFORMATION
  Report Type: Spontaneous
  Country: DE (occurrence: DE)
  Receive Date: 20180517
  Receipt Date: 20180517
  Transmission Date: 20180711
  Serious: Yes (Hospitalization)
  Sender: FDA-Public Use
  Company Number: DE-VELOXIS PHARMACEUTICALS-2047972

PATIENT
  Age: 60 Year
  Sex: Male
  Weight: 80 kg

DRUGS (18)
  1. BUDESONIDE. [Concomitant]
     Active Substance: BUDESONIDE
  2. TORASEMID [Concomitant]
     Active Substance: TORSEMIDE
  3. AMLODIPINE [Concomitant]
     Active Substance: AMLODIPINE BESYLATE
  4. NEUPOGEN [Concomitant]
     Active Substance: FILGRASTIM
  5. MAGNESIUM VERLA [Concomitant]
     Active Substance: MAGNESIUM
  6. PREGABALIN. [Concomitant]
     Active Substance: PREGABALIN
  7. SITAGLIPTIN [Concomitant]
     Active Substance: SITAGLIPTIN
  8. SALAGEN [Concomitant]
     Active Substance: PILOCARPINE HYDROCHLORIDE
  9. PANTOPRAZOL [Concomitant]
     Active Substance: PANTOPRAZOLE SODIUM
  10. ACICLOVIR [Concomitant]
     Active Substance: ACYCLOVIR
  11. PREDNISOLONE. [Suspect]
     Active Substance: PREDNISOLONE
     Route: 048
  12. POSACONAZOLE [Concomitant]
     Active Substance: POSACONAZOLE
  13. METOPROLOL. [Concomitant]
     Active Substance: METOPROLOL
  14. TRIMETHOPRIM / SULFAMETHOXAZOL [Concomitant]
  15. ENVARSUS XR [Suspect]
     Active Substance: TACROLIMUS
     Indication: PRODUCT USED FOR UNKNOWN INDICATION
     Route: 048
  16. NOVORAPID [Concomitant]
     Active Substance: INSULIN ASPART
  17. FLUVASTATIN [Concomitant]
     Active Substance: FLUVASTATIN SODIUM
  18. ARANESP [Concomitant]
     Active Substance: DARBEPOETIN ALFA

REACTIONS (5)
  - Febrile infection [Unknown]
  - Pyrexia [Unknown]
  - Oropharyngeal pain [Unknown]
  - General physical health deterioration [Unknown]
  - Ear pain [Unknown]
